FAERS Safety Report 15596140 (Version 1)
Quarter: 2018Q4

REPORT INFORMATION
  Report Type: Spontaneous
  Country: US (occurrence: US)
  Receive Date: 20181107
  Receipt Date: 20181107
  Transmission Date: 20190205
  Serious: No
  Sender: FDA-Public Use
  Company Number: US-SA-2018SA304580

PATIENT
  Sex: Female

DRUGS (3)
  1. REMICADE [Concomitant]
     Active Substance: INFLIXIMAB
  2. ARAVA [Suspect]
     Active Substance: LEFLUNOMIDE
  3. RAYOS [Concomitant]
     Active Substance: PREDNISONE

REACTIONS (2)
  - Tenderness [Unknown]
  - Burning sensation [Unknown]
